FAERS Safety Report 4554948-8 (Version None)
Quarter: 2004Q4

REPORT INFORMATION
  Report Type: 
  Country: None (occurrence: None)
  Receive Date: 20041222
  Receipt Date: 20041027
  Transmission Date: 20050328
  Serious: Yes (Other)
  Sender: FDA-Public Use
  Company Number: 210074

PATIENT
  Age: 69 Year
  Sex: Male
  Weight: 119.3 kg

DRUGS (6)
  1. AVASTIN [Suspect]
     Indication: COLON CANCER METASTATIC
     Dosage: 600 MG, Q2W, INTRAVENOUS
     Route: 042
     Dates: start: 20040721
  2. OXALIPLATIN [Concomitant]
  3. LEUCOVORIN CALCIUM [Concomitant]
  4. ADRUCIL [Concomitant]
  5. HYPERTENSIVES (HYPERTENSIVES) [Concomitant]
  6. DIURETICS (DIURETICS) [Concomitant]

REACTIONS (1)
  - PROTEINURIA [None]
